FAERS Safety Report 9690949 (Version 4)
Quarter: 2013Q4

REPORT INFORMATION
  Report Type: Spontaneous
  Country: JP (occurrence: JP)
  Receive Date: 20131115
  Receipt Date: 20131220
  Transmission Date: 20140711
  Serious: Yes (Life-Threatening, Hospitalization, Other)
  Sender: FDA-Public Use
  Company Number: JP-PFIZER INC-2013321458

PATIENT
  Age: 75 Year
  Sex: Female

DRUGS (1)
  1. REVATIO [Suspect]
     Dosage: 20 MG, 1X/DAY
     Route: 048

REACTIONS (4)
  - Dysarthria [Recovered/Resolved]
  - Sepsis [Recovered/Resolved]
  - Renal failure acute [Recovered/Resolved]
  - Hyperkalaemia [Recovered/Resolved]
